FAERS Safety Report 7108578-4 (Version None)
Quarter: 2010Q4

REPORT INFORMATION
  Report Type: 
  Country: None (occurrence: None)
  Receive Date: 20101117
  Receipt Date: 20101015
  Transmission Date: 20110411
  Serious: No
  Sender: FDA-Public Use
  Company Number: A0887092A

PATIENT
  Age: 64 Year
  Sex: Male

DRUGS (6)
  1. VOTRIENT [Suspect]
     Dosage: 800MG PER DAY
     Route: 048
     Dates: start: 20100703
  2. ATENOLOL [Concomitant]
  3. AMLODIPINE BESYLATE [Concomitant]
  4. TRICOR [Concomitant]
  5. NEXIUM [Concomitant]
  6. BUPROPION HCL [Concomitant]

REACTIONS (1)
  - RED BLOOD CELL COUNT DECREASED [None]
